FAERS Safety Report 11057579 (Version 1)
Quarter: 2015Q2

REPORT INFORMATION
  Report Type: Spontaneous
  Country: SE (occurrence: SE)
  Receive Date: 20150422
  Receipt Date: 20150422
  Transmission Date: 20150821
  Serious: Yes (Hospitalization)
  Sender: FDA-Public Use
  Company Number: PHHY2015SE043989

PATIENT
  Age: 73 Year

DRUGS (1)
  1. AFINITOR [Suspect]
     Active Substance: EVEROLIMUS
     Indication: RENAL CANCER
     Route: 065
     Dates: start: 20141030

REACTIONS (6)
  - Bile duct obstruction [Unknown]
  - Duodenitis haemorrhagic [Unknown]
  - Electrocardiogram abnormal [Unknown]
  - Blood bilirubin increased [Unknown]
  - Duodenitis [Unknown]
  - Infection [Unknown]
